FAERS Safety Report 17143312 (Version 1)
Quarter: 2019Q4

REPORT INFORMATION
  Report Type: Spontaneous
  Country: CA (occurrence: CA)
  Receive Date: 20191211
  Receipt Date: 20191211
  Transmission Date: 20200122
  Serious: Yes (Other)
  Sender: FDA-Public Use
  Company Number: CA-AMERICAN REGENT INC-20181805

PATIENT
  Age: 46 Year
  Sex: Female

DRUGS (2)
  1. IBUPROFEN. [Concomitant]
     Active Substance: IBUPROFEN
     Dosage: UNKNOWN AS NEEDED
     Route: 065
  2. VENOFER [Suspect]
     Active Substance: IRON SUCROSE
     Indication: ANAEMIA
     Dosage: 300 MG /250 MG NS  ABOUT 2 HOURS
     Route: 042
     Dates: start: 20180924, end: 20180924

REACTIONS (10)
  - Product quality issue [Unknown]
  - Blood pressure immeasurable [Unknown]
  - Dizziness [Recovered/Resolved]
  - Blood pressure systolic decreased [Recovered/Resolved]
  - Resuscitation [Recovered/Resolved]
  - Urticaria [Recovered/Resolved]
  - Peripheral swelling [Recovered/Resolved]
  - Cardiac arrest [Recovered/Resolved]
  - Syncope [Unknown]
  - Depressed level of consciousness [Unknown]

NARRATIVE: CASE EVENT DATE: 20180924
